FAERS Safety Report 23365449 (Version 1)
Quarter: 2024Q1

REPORT INFORMATION
  Report Type: Spontaneous
  Country: US (occurrence: None)
  Receive Date: 20240103
  Receipt Date: 20240103
  Transmission Date: 20240410
  Serious: Yes (Disabling)
  Sender: FDA-Public Use
  Company Number: None

PATIENT
  Age: 74 Year
  Sex: Female
  Weight: 76.95 kg

DRUGS (40)
  1. LEQVIO [Suspect]
     Active Substance: INCLISIRAN SODIUM
     Indication: Blood cholesterol
     Dosage: OTHER FREQUENCY : THREE MONTHS;?
     Route: 058
     Dates: start: 20230808, end: 20231108
  2. COREG [Concomitant]
     Active Substance: CARVEDILOL
  3. Isosorbide Mononitate ER [Concomitant]
  4. LEVOTHYROXINE [Concomitant]
     Active Substance: LEVOTHYROXINE
  5. OMEPRAZOLE [Concomitant]
     Active Substance: OMEPRAZOLE
  6. CLOPIDOGREL [Concomitant]
  7. RANOLAZINE [Concomitant]
     Active Substance: RANOLAZINE
  8. RESTASIS [Concomitant]
     Active Substance: CYCLOSPORINE
  9. SERTRALINE HYDROCHLORIDE [Concomitant]
     Active Substance: SERTRALINE HYDROCHLORIDE
  10. COREG [Concomitant]
     Active Substance: CARVEDILOL
  11. PEPCID [Concomitant]
     Active Substance: FAMOTIDINE
  12. LOSARTAN [Concomitant]
     Active Substance: LOSARTAN
  13. CRESTOR [Concomitant]
     Active Substance: ROSUVASTATIN CALCIUM
  14. ZOLOFT [Concomitant]
     Active Substance: SERTRALINE HYDROCHLORIDE
  15. TRAZODONE [Concomitant]
     Active Substance: TRAZODONE HYDROCHLORIDE
  16. AZELASTINE HYDROCHLORIDE [Concomitant]
     Active Substance: AZELASTINE HYDROCHLORIDE
  17. FLUTICASONE PROPIONATE [Concomitant]
     Active Substance: FLUTICASONE PROPIONATE
  18. RESTASIS [Concomitant]
     Active Substance: CYCLOSPORINE
  19. NITROGLYCERIN [Concomitant]
     Active Substance: NITROGLYCERIN
  20. Aspirin 81 Acetaminophen Rapid Release [Concomitant]
  21. CALCIUM [Concomitant]
     Active Substance: CALCIUM
  22. CRANBERRY [Concomitant]
     Active Substance: CRANBERRY
  23. Echinacea Complex [Concomitant]
  24. OCUVITE [Concomitant]
     Active Substance: VITAMINS
  25. POTASSIUM [Concomitant]
     Active Substance: POTASSIUM
  26. PROBIOTICS NOS [Concomitant]
     Active Substance: PROBIOTICS NOS
  27. Turmeric [Concomitant]
  28. VITAMIN B12 [Concomitant]
     Active Substance: CYANOCOBALAMIN
  29. VITAMIN D3 [Concomitant]
     Active Substance: CHOLECALCIFEROL
  30. Acetaminophen Rapid Release Biotin [Concomitant]
  31. BIOTIN [Concomitant]
     Active Substance: BIOTIN
  32. CholestOff Plus Qunol Ultra [Concomitant]
  33. COENZYME Q10 [Concomitant]
     Active Substance: DIETARY SUPPLEMENT\UBIDECARENONE
  34. EVENING PRIMROSE OIL\HERBALS [Concomitant]
     Active Substance: EVENING PRIMROSE OIL\HERBALS
  35. EVENING PRIMROSE OIL\HERBALS [Concomitant]
     Active Substance: EVENING PRIMROSE OIL\HERBALS
  36. Glucosamine Chondroitin Complex 2 [Concomitant]
  37. VITAMIN C [Concomitant]
     Active Substance: ASCORBIC ACID
  38. ZINC [Concomitant]
     Active Substance: PYRITHIONE ZINC\ZINC\ZINC CHLORIDE
  39. SYSTANE COMPLETE PF [Concomitant]
     Active Substance: PROPYLENE GLYCOL
  40. Tylenol ES Rapid Release [Concomitant]

REACTIONS (6)
  - Diarrhoea [None]
  - Constipation [None]
  - Anal incontinence [None]
  - Abdominal distension [None]
  - Intentional dose omission [None]
  - Haemorrhoids [None]

NARRATIVE: CASE EVENT DATE: 20230808
